FAERS Safety Report 9776417 (Version 1)
Quarter: 2013Q4

REPORT INFORMATION
  Report Type: Spontaneous
  Country: US (occurrence: US)
  Receive Date: 20131220
  Receipt Date: 20131220
  Transmission Date: 20140711
  Serious: No
  Sender: FDA-Public Use
  Company Number: US-BIOGENIDEC-2013BI120498

PATIENT
  Sex: Female

DRUGS (3)
  1. TECFIDERA [Suspect]
     Indication: MULTIPLE SCLEROSIS
     Route: 048
     Dates: start: 201310
  2. CITALOPRAM HBR [Concomitant]
  3. SM VITAMIN B12 [Concomitant]

REACTIONS (2)
  - Treatment failure [Unknown]
  - Multiple sclerosis relapse [Not Recovered/Not Resolved]
